FAERS Safety Report 14294330 (Version 4)
Quarter: 2018Q1

REPORT INFORMATION
  Report Type: Report from Study
  Country: None (occurrence: US)
  Receive Date: 20171217
  Receipt Date: 20180315
  Transmission Date: 20180509
  Serious: Yes (Other)
  Sender: FDA-Public Use
  Company Number: US-ABBVIE-17K-163-2114851-00

PATIENT
  Age: 16 Year
  Sex: Male

DRUGS (3)
  1. HUMIRA [Suspect]
     Active Substance: ADALIMUMAB
     Route: 058
     Dates: start: 20171003
  2. HUMIRA [Suspect]
     Active Substance: ADALIMUMAB
     Indication: CROHN^S DISEASE
     Dosage: DAY 15
     Route: 058
     Dates: start: 20170919, end: 20170919
  3. HUMIRA [Suspect]
     Active Substance: ADALIMUMAB
     Indication: CROHN^S DISEASE
     Dosage: DAY 1
     Route: 058
     Dates: start: 20170905, end: 20170905

REACTIONS (15)
  - Anaemia [Not Recovered/Not Resolved]
  - Fatigue [Unknown]
  - White blood cell count increased [Unknown]
  - Cough [Unknown]
  - Fear [Unknown]
  - Defaecation urgency [Not Recovered/Not Resolved]
  - Injection site mass [Recovered/Resolved]
  - Musculoskeletal chest pain [Recovered/Resolved]
  - Pubic pain [Recovered/Resolved]
  - Malaise [Unknown]
  - Energy increased [Recovering/Resolving]
  - Hyperhidrosis [Recovered/Resolved]
  - Haematocrit decreased [Unknown]
  - Inflammatory marker increased [Recovering/Resolving]
  - Pyrexia [Recovered/Resolved]

NARRATIVE: CASE EVENT DATE: 2017
